FAERS Safety Report 8898036 (Version 1)
Quarter: 2012Q4

REPORT INFORMATION
  Report Type: 
  Country: US (occurrence: US)
  Receive Date: 20121108
  Receipt Date: 20121108
  Transmission Date: 20130627
  Serious: No
  Sender: FDA-Public Use
  Company Number: US-AMGEN-USASP2012031026

PATIENT
  Age: 39 Year
  Sex: Male

DRUGS (2)
  1. ENBREL [Suspect]
     Indication: PSORIASIS
     Dosage: 50 mg, 2 times/wk
     Dates: start: 2007
  2. ENBREL [Suspect]
     Dosage: 50 mg, qwk
     Dates: end: 2009

REACTIONS (3)
  - Vision blurred [Recovered/Resolved]
  - Feeling abnormal [Recovered/Resolved]
  - Psoriasis [Recovered/Resolved]
